FAERS Safety Report 23973404 (Version 2)
Quarter: 2024Q3

REPORT INFORMATION
  Report Type: Spontaneous
  Country: US (occurrence: US)
  Receive Date: 20240613
  Receipt Date: 20240708
  Transmission Date: 20241017
  Serious: Yes (Hospitalization)
  Sender: TEVA
  Company Number: US-TEVA-VS-3207216

PATIENT
  Age: 65 Year
  Sex: Female

DRUGS (3)
  1. POSACONAZOLE [Suspect]
     Active Substance: POSACONAZOLE
     Indication: Antifungal prophylaxis
     Route: 065
  2. TACROLIMUS [Concomitant]
     Active Substance: TACROLIMUS
     Indication: Immunosuppressant drug therapy
     Route: 065
  3. BELATACEPT [Suspect]
     Active Substance: BELATACEPT
     Indication: Immunosuppressant drug therapy
     Route: 065

REACTIONS (7)
  - Scedosporium infection [Unknown]
  - Mental status changes [Unknown]
  - Seizure [Unknown]
  - Brain abscess [Unknown]
  - Drug ineffective [Unknown]
  - Infective aneurysm [Unknown]
  - Cerebral infarction [Unknown]
